FAERS Safety Report 6731723-7 (Version None)
Quarter: 2010Q2

REPORT INFORMATION
  Report Type: 
  Country: None (occurrence: None)
  Receive Date: 20100518
  Receipt Date: 20100518
  Transmission Date: 20101027
  Serious: Yes (Death, Hospitalization)
  Sender: FDA-Public Use
  Company Number: None

PATIENT
  Sex: Female
  Weight: 25 kg

DRUGS (5)
  1. RAPAMUNE [Suspect]
     Dosage: 54.6 MG
  2. CYCLOPHOSPHAMIDE [Suspect]
     Dosage: 2960 MG
  3. METHOTREXATE [Suspect]
     Dosage: 13.5 MG
  4. TACROLIMUS [Suspect]
     Dosage: 23.6466 MG
  5. THIOTEPA [Suspect]
     Dosage: 240 MG

REACTIONS (25)
  - ABDOMINAL PAIN [None]
  - ASCITES [None]
  - BLOOD BILIRUBIN INCREASED [None]
  - CARDIAC ARREST [None]
  - COAGULOPATHY [None]
  - EPISTAXIS [None]
  - GALLBLADDER DISORDER [None]
  - GASTROINTESTINAL DISORDER [None]
  - MULTI-ORGAN FAILURE [None]
  - NO THERAPEUTIC RESPONSE [None]
  - PERICARDIAL EFFUSION [None]
  - PLATELET DISORDER [None]
  - PLEURAL EFFUSION [None]
  - PNEUMOMEDIASTINUM [None]
  - PNEUMOTHORAX [None]
  - PORTAL VEIN FLOW DECREASED [None]
  - PULMONARY HAEMORRHAGE [None]
  - PUNCTURE SITE DISCHARGE [None]
  - RESPIRATORY DISORDER [None]
  - RESPIRATORY FAILURE [None]
  - SUBCUTANEOUS EMPHYSEMA [None]
  - TACHYPNOEA [None]
  - TENDERNESS [None]
  - VENOOCCLUSIVE DISEASE [None]
  - WEIGHT INCREASED [None]
